FAERS Safety Report 14330532 (Version 3)
Quarter: 2018Q1

REPORT INFORMATION
  Report Type: Report from Study
  Country: None (occurrence: NL)
  Receive Date: 20171227
  Receipt Date: 20180220
  Transmission Date: 20180509
  Serious: Yes (Hospitalization, Disabling, Other)
  Sender: FDA-Public Use
  Company Number: NL-ABBVIE-17K-114-2205162-00

PATIENT
  Age: 80 Year
  Sex: Female
  Weight: 60 kg

DRUGS (28)
  1. SODIUM BICARBONATE. [Concomitant]
     Active Substance: SODIUM BICARBONATE
     Indication: PRODUCT USED FOR UNKNOWN INDICATION
     Dosage: 42 MG/MLM; ONCE DAILY IF NEEDED
     Route: 042
     Dates: start: 20171225
  2. PAROXETINE. [Concomitant]
     Active Substance: PAROXETINE
     Route: 048
     Dates: start: 20171220
  3. DOMPERIDONE [Concomitant]
     Active Substance: DOMPERIDONE
     Indication: PRODUCT USED FOR UNKNOWN INDICATION
     Route: 048
     Dates: start: 20150225, end: 20171220
  4. DAKTACORT [Concomitant]
     Active Substance: HYDROCORTISONE\MICONAZOLE NITRATE
     Dosage: 10/20 MG/G  1 CM2:
     Route: 003
     Dates: start: 20180106, end: 20180118
  5. INHIBIN [Concomitant]
     Indication: PRODUCT USED FOR UNKNOWN INDICATION
     Dosage: ONCE DAILY IF NEEDED
     Route: 048
     Dates: start: 20140918, end: 20171220
  6. LEVODOPA/CARBIDOPA [Concomitant]
     Active Substance: CARBIDOPA\LEVODOPA
     Dosage: 250/25 MG
     Route: 048
     Dates: start: 20130329, end: 20171220
  7. PANTOPRAZOLE [Concomitant]
     Active Substance: PANTOPRAZOLE
     Indication: PRODUCT USED FOR UNKNOWN INDICATION
     Route: 048
     Dates: start: 20171219, end: 20180110
  8. LACTULOSE. [Concomitant]
     Active Substance: LACTULOSE
     Indication: PRODUCT USED FOR UNKNOWN INDICATION
     Route: 048
     Dates: start: 20180102, end: 20180118
  9. MICROLAX [Concomitant]
     Indication: PRODUCT USED FOR UNKNOWN INDICATION
     Dosage: 9/625 MG/ML; ONCE DAILY IF NEEDED
     Route: 054
     Dates: start: 20180118
  10. 3M CAVILON ANTIFUNGAL [Concomitant]
     Active Substance: MICONAZOLE NITRATE
     Indication: STOMA SITE IRRITATION
     Route: 003
     Dates: start: 20180110
  11. FRAGMIN [Concomitant]
     Active Substance: DALTEPARIN SODIUM
     Indication: MOBILITY DECREASED
     Dosage: 12500 IU/ML
     Route: 058
     Dates: start: 20171219, end: 20180118
  12. DOMPERIDONE [Concomitant]
     Active Substance: DOMPERIDONE
     Route: 048
     Dates: start: 20171220
  13. PARACETAMOL [Concomitant]
     Active Substance: ACETAMINOPHEN
     Indication: PRODUCT USED FOR UNKNOWN INDICATION
     Dosage: 4 TIMES A DAY IF NEEDED
     Route: 048
     Dates: start: 20180122, end: 20180205
  14. LEVODOPA/CARBIDOPA [Concomitant]
     Active Substance: CARBIDOPA\LEVODOPA
     Dosage: 100/25 MG
     Route: 048
     Dates: start: 20140515, end: 20171220
  15. LEVODOPA/CARBIDOPA [Concomitant]
     Active Substance: CARBIDOPA\LEVODOPA
     Dosage: 250/25 MG
     Route: 048
     Dates: start: 20171220, end: 20171220
  16. DUODOPA [Suspect]
     Active Substance: CARBIDOPA\LEVODOPA
     Indication: PARKINSON^S DISEASE
     Dosage: MD: 7.5, CD: 2.1, ED: 3.5
     Route: 050
     Dates: start: 20120608
  17. PRUNASINE [Concomitant]
     Indication: PRODUCT USED FOR UNKNOWN INDICATION
     Dosage: 80/1 MG/ML
     Route: 048
     Dates: start: 20180118
  18. LEVODOPA/CARBIDOPA [Concomitant]
     Active Substance: CARBIDOPA\LEVODOPA
     Dosage: 100/25 MG
     Route: 048
     Dates: start: 20171220, end: 20171221
  19. PAROXETINE. [Concomitant]
     Active Substance: PAROXETINE
     Indication: PRODUCT USED FOR UNKNOWN INDICATION
     Route: 048
     Dates: start: 20150923, end: 20171220
  20. ESOMEPRAZOLE [Concomitant]
     Active Substance: ESOMEPRAZOLE
     Indication: PRODUCT USED FOR UNKNOWN INDICATION
     Route: 048
     Dates: start: 20141224, end: 20171219
  21. INHIBIN [Concomitant]
     Dosage: ONCE DAILY IF NEEDED
     Route: 048
     Dates: start: 20171220
  22. BUTRANS [Concomitant]
     Active Substance: BUPRENORPHINE
     Indication: PRODUCT USED FOR UNKNOWN INDICATION
     Dosage: 5 UG/HOUR; 1 DAY, 6 DAYS NOT
     Route: 062
     Dates: start: 20171221
  23. PARACETAMOL [Concomitant]
     Active Substance: ACETAMINOPHEN
     Dosage: 3 TIMES A DAY, ONCE DAILY IF NEEDED
     Route: 048
     Dates: start: 20180205
  24. DAKTACORT [Concomitant]
     Active Substance: HYDROCORTISONE\MICONAZOLE NITRATE
     Indication: PRODUCT USED FOR UNKNOWN INDICATION
     Dosage: 10/20 MG/G; 2 TIMES A DAY ACCORDING SCHEDULE IF NEED
     Route: 003
     Dates: start: 20171006
  25. LEVODOPA/CARBIDOPA [Concomitant]
     Active Substance: CARBIDOPA\LEVODOPA
     Indication: PRODUCT USED FOR UNKNOWN INDICATION
     Dosage: 100/25 MG
     Route: 048
     Dates: start: 20171220
  26. LEVODOPA/CARBIDOPA [Concomitant]
     Active Substance: CARBIDOPA\LEVODOPA
     Dosage: 250/25 MG
     Route: 048
     Dates: start: 20171221
  27. KETOCONAZOLE/HYDROCORTISONE ACETATE/ZINC OXIDE IN CETOMACROGOL [Concomitant]
     Indication: STOMA SITE IRRITATION
     Dosage: 2/1/10%?1 CM2
     Route: 003
     Dates: start: 20180205
  28. HYDROCHLOROTHIAZIDE. [Concomitant]
     Active Substance: HYDROCHLOROTHIAZIDE
     Indication: PRODUCT USED FOR UNKNOWN INDICATION
     Route: 048
     Dates: start: 20171227, end: 20171227

REACTIONS (24)
  - Cerebrovascular accident [Recovered/Resolved with Sequelae]
  - Blood potassium increased [Unknown]
  - Blood creatinine increased [Unknown]
  - Motor dysfunction [Unknown]
  - Glomerular filtration rate decreased [Unknown]
  - Hypoaesthesia [Unknown]
  - Hyperreflexia [Unknown]
  - Hyperkalaemia [Unknown]
  - Mobility decreased [Unknown]
  - Cerebellar syndrome [Unknown]
  - Arterial wall hypertrophy [Unknown]
  - Blood urea increased [Unknown]
  - Haematocrit decreased [Unknown]
  - External ear pain [Unknown]
  - Carotid arteriosclerosis [Unknown]
  - Haemoglobin decreased [Unknown]
  - Fall [Unknown]
  - Dysarthria [Unknown]
  - Red blood cell count decreased [Unknown]
  - Akathisia [Unknown]
  - Dyskinesia [Unknown]
  - Hypertonia [Unknown]
  - Coordination abnormal [Unknown]
  - Cerebral atrophy [Unknown]

NARRATIVE: CASE EVENT DATE: 201706
